FAERS Safety Report 4277523-1 (Version None)
Quarter: 2004Q1

REPORT INFORMATION
  Report Type: 
  Country: None (occurrence: None)
  Receive Date: 20040121
  Receipt Date: 20040121
  Transmission Date: 20041129
  Serious: No
  Sender: FDA-Public Use
  Company Number: None

PATIENT
  Sex: Male
  Weight: 28.3 kg

DRUGS (2)
  1. ALPHANATE [Suspect]
  2. HUMATE-P [Suspect]

REACTIONS (5)
  - ANAPHYLACTIC REACTION [None]
  - OXYGEN SATURATION DECREASED [None]
  - RESPIRATORY DISTRESS [None]
  - URTICARIA [None]
  - WHEEZING [None]
